FAERS Safety Report 24584556 (Version 1)
Quarter: 2024Q4

REPORT INFORMATION
  Report Type: Spontaneous
  Country: US (occurrence: None)
  Receive Date: 20241106
  Receipt Date: 20241106
  Transmission Date: 20250115
  Serious: Yes (Hospitalization)
  Sender: Public
  Company Number: None

PATIENT
  Sex: Female
  Weight: 76.2 kg

DRUGS (12)
  1. CARBOPLATIN [Suspect]
     Active Substance: CARBOPLATIN
  2. TAXOL [Suspect]
     Active Substance: PACLITAXEL
  3. CLONIDINE [Concomitant]
  4. BACLOFEN [Concomitant]
  5. ESCITALOPRAM [Concomitant]
  6. LOSARTAN [Concomitant]
  7. OCYCODONE [Concomitant]
  8. PANTOPRAZOLE [Concomitant]
  9. PROCHLORPERAZINE [Concomitant]
  10. RIVAROXABAN [Concomitant]
  11. SINGULAR [Concomitant]
  12. STRATTERA [Concomitant]

REACTIONS (7)
  - Chest pain [None]
  - Sinus tachycardia [None]
  - Anaemia [None]
  - White blood cell count decreased [None]
  - Hyponatraemia [None]
  - Hypokalaemia [None]
  - Therapy change [None]

NARRATIVE: CASE EVENT DATE: 20241028
